FAERS Safety Report 25123401 (Version 1)
Quarter: 2025Q1

REPORT INFORMATION
  Report Type: Spontaneous
  Country: FR (occurrence: FR)
  Receive Date: 20250326
  Receipt Date: 20250326
  Transmission Date: 20250408
  Serious: Yes (Other)
  Sender: AUROBINDO
  Company Number: FR-SERVIER-S25002438

PATIENT
  Age: 48 Year
  Sex: Male
  Weight: 96 kg

DRUGS (16)
  1. CARBOPLATIN [Suspect]
     Active Substance: CARBOPLATIN
     Indication: Glioma
     Route: 065
     Dates: end: 20201012
  2. VORASIDENIB [Suspect]
     Active Substance: VORASIDENIB
     Indication: Glioma
     Dosage: 40 MILLIGRAM, ONCE A DAY [40 MG, QD]
     Route: 048
     Dates: start: 20240523
  3. KEPPRA [Concomitant]
     Active Substance: LEVETIRACETAM
     Indication: Epilepsy
     Dosage: 1000 MILLIGRAM, ONCE A DAY [500 MG, BID]
     Route: 048
     Dates: start: 20200817
  4. VIMPAT [Concomitant]
     Active Substance: LACOSAMIDE
     Indication: Epilepsy
     Dosage: 600 MILLIGRAM, ONCE A DAY [300 MG, BID]
     Route: 048
     Dates: start: 20201001
  5. BRINTELLIX [Concomitant]
     Active Substance: VORTIOXETINE HYDROBROMIDE
     Indication: Depression
     Dosage: 20 MILLIGRAM, ONCE A DAY [20 MG, QD]
     Route: 048
     Dates: start: 20201110, end: 20240930
  6. SIMVASTATIN [Concomitant]
     Active Substance: SIMVASTATIN
     Indication: Hyperlipidaemia
     Dosage: 20 MILLIGRAM, ONCE A DAY [20 MG, QD]
     Route: 048
     Dates: start: 20230721
  7. OMEPRAZOLE [Concomitant]
     Active Substance: OMEPRAZOLE
     Indication: Dyspepsia
     Route: 048
     Dates: start: 20220202
  8. CLOBAZAM [Concomitant]
     Active Substance: CLOBAZAM
     Indication: Anxiety
     Dosage: 5 MILLIGRAM, ONCE A DAY [5 MG, QD]
     Route: 048
     Dates: start: 20200817
  9. PRIMPERAN [Concomitant]
     Active Substance: METOCLOPRAMIDE HYDROCHLORIDE
     Indication: Nausea
     Dosage: 3 DOSAGE FORM, ONCE A DAY [3 DF, QD]
     Route: 048
     Dates: start: 20210106
  10. PRIMPERAN [Concomitant]
     Active Substance: METOCLOPRAMIDE HYDROCHLORIDE
     Indication: Vomiting
  11. BACTRIM [Concomitant]
     Active Substance: SULFAMETHOXAZOLE\TRIMETHOPRIM
     Indication: Lymphopenia
     Dosage: 400 MILLIGRAM, ONCE A DAY [400 MG, QD]
     Route: 048
     Dates: start: 20211208, end: 20240730
  12. BACTRIM [Concomitant]
     Active Substance: SULFAMETHOXAZOLE\TRIMETHOPRIM
     Dosage: 400 MILLIGRAM, ONCE A DAY [400 MG, QD]
     Route: 048
     Dates: start: 20241015, end: 20241203
  13. LEUCOVORIN CALCIUM [Concomitant]
     Active Substance: LEUCOVORIN CALCIUM
     Indication: Anaemia
     Dosage: 25 MILLIGRAM, EVERY WEEK [25 MG, 1X/WEEK]
     Route: 048
     Dates: start: 20211208, end: 20240728
  14. LEUCOVORIN CALCIUM [Concomitant]
     Active Substance: LEUCOVORIN CALCIUM
     Dosage: 25 MILLIGRAM, ONCE A DAY [25 MG, QD]
     Route: 048
     Dates: start: 20241015, end: 20241203
  15. MIRTAZAPINE [Concomitant]
     Active Substance: MIRTAZAPINE
     Indication: Depression
     Dosage: 15 MILLIGRAM, ONCE A DAY [15 MG, QD]
     Route: 048
     Dates: start: 20240730
  16. VENLAFAXINE [Concomitant]
     Active Substance: VENLAFAXINE HYDROCHLORIDE
     Indication: Depression
     Dosage: 225 MILLIGRAM, ONCE A DAY [75 MG, TID]
     Route: 048
     Dates: start: 20240903

REACTIONS (4)
  - Hepatic cytolysis [Recovered/Resolved]
  - Tremor [Unknown]
  - Fatigue [Unknown]
  - Fall [Recovered/Resolved with Sequelae]

NARRATIVE: CASE EVENT DATE: 20240502
